FAERS Safety Report 5875508-2 (Version None)
Quarter: 2008Q3

REPORT INFORMATION
  Report Type: 
  Country: None (occurrence: None)
  Receive Date: 20080909
  Receipt Date: 20080829
  Transmission Date: 20090109
  Serious: Yes (Other)
  Sender: FDA-Public Use
  Company Number: US-BAXTER-2008BH005350

PATIENT
  Age: 66 Year
  Sex: Male
  Weight: 253 kg

DRUGS (7)
  1. ARTISS [Suspect]
     Indication: HAEMOSTASIS
     Route: 061
     Dates: start: 20060815, end: 20060815
  2. ARTISS [Suspect]
     Indication: TISSUE SEALING
     Route: 061
     Dates: start: 20060815, end: 20060815
  3. ARTISS [Suspect]
     Route: 065
     Dates: start: 20060829, end: 20060829
  4. ARTISS [Suspect]
     Route: 065
     Dates: start: 20060829, end: 20060829
  5. DOXYCYCLINE [Concomitant]
     Indication: BACTERIAL INFECTION
     Route: 048
     Dates: start: 20070710
  6. KEFLEX [Concomitant]
     Indication: INFECTION PROPHYLAXIS
     Route: 048
     Dates: start: 20060815
  7. AVELOX [Concomitant]
     Indication: BACTERIAL INFECTION
     Route: 048

REACTIONS (4)
  - FURUNCLE [None]
  - HAEMATOMA [None]
  - INGROWN HAIR [None]
  - STAPHYLOCOCCAL INFECTION [None]
